FAERS Safety Report 23554704 (Version 1)
Quarter: 2024Q1

REPORT INFORMATION
  Report Type: Spontaneous
  Country: US (occurrence: None)
  Receive Date: 20240222
  Receipt Date: 20240222
  Transmission Date: 20240410
  Serious: Yes (Hospitalization)
  Sender: FDA-Public Use
  Company Number: None

PATIENT
  Sex: Female

DRUGS (1)
  1. AMINOCAPROIC ACID [Suspect]
     Active Substance: AMINOCAPROIC ACID
     Indication: Haemophilia
     Dosage: OTHER STRENGTH : 0.25GM/ML;?EVERY 6 HOURS AS NEEDED FOR 3-5 DAY, AT A TIME.
     Route: 048
     Dates: start: 202011

REACTIONS (2)
  - COVID-19 [None]
  - Seizure [None]
